FAERS Safety Report 9018577 (Version 2)
Quarter: 2013Q1

REPORT INFORMATION
  Report Type: Spontaneous
  Country: US (occurrence: US)
  Receive Date: 20130118
  Receipt Date: 20130123
  Transmission Date: 20140127
  Serious: No
  Sender: FDA-Public Use
  Company Number: US-PFIZER INC-2013016482

PATIENT
  Age: 49 Year
  Sex: Female
  Weight: 73 kg

DRUGS (3)
  1. MEDROXYPROGESTERONE ACETATE [Suspect]
     Indication: PREMENSTRUAL SYNDROME
     Dosage: UNK, EVERY 3 MONTHS
     Dates: start: 20121210
  2. DILTIAZEM [Concomitant]
     Indication: HYPERTENSION
     Dosage: 1 DF, DAILY
  3. APAP / CODEINE [Concomitant]
     Indication: ABDOMINAL PAIN UPPER
     Dosage: UNK, AS NEEDED

REACTIONS (2)
  - Drug ineffective [Unknown]
  - Menstrual disorder [Unknown]
